FAERS Safety Report 5606989-7 (Version None)
Quarter: 2008Q1

REPORT INFORMATION
  Report Type: 
  Country: None (occurrence: None)
  Receive Date: 20080111
  Receipt Date: 20071005
  Transmission Date: 20080703
  Serious: Yes (Other)
  Sender: FDA-Public Use
  Company Number: HQWYE365022JUL04

PATIENT
  Age: 46 Year
  Sex: Female

DRUGS (4)
  1. PREMPRO [Suspect]
     Indication: HORMONE REPLACEMENT THERAPY
     Dosage: ORAL
     Route: 048
     Dates: start: 20010101, end: 20010201
  2. PREMARIN [Suspect]
  3. PREMARIN [Suspect]
     Indication: OESTROGEN REPLACEMENT THERAPY
     Dosage: ORAL
     Route: 048
     Dates: start: 19990501, end: 20010201
  4. PROVERA [Suspect]
     Indication: HORMONE REPLACEMENT THERAPY
     Dosage: ORAL
     Route: 048
     Dates: start: 19990501, end: 20010201

REACTIONS (1)
  - BREAST CANCER [None]
